FAERS Safety Report 21336545 (Version 2)
Quarter: 2022Q3

REPORT INFORMATION
  Report Type: Report from Study
  Country: US (occurrence: US)
  Receive Date: 20220915
  Receipt Date: 20220923
  Transmission Date: 20221027
  Serious: Yes (Other)
  Sender: FDA-Public Use
  Company Number: US-HORIZON THERAPEUTICS-HZN-2022-006974

PATIENT

DRUGS (4)
  1. KRYSTEXXA [Suspect]
     Active Substance: PEGLOTICASE
     Indication: Gout
     Dosage: 1ST DOSE
     Route: 042
     Dates: start: 20210510
  2. KRYSTEXXA [Suspect]
     Active Substance: PEGLOTICASE
     Dosage: 2ND DOSE
     Route: 042
  3. KRYSTEXXA [Suspect]
     Active Substance: PEGLOTICASE
     Dosage: 3RD DOSE
     Route: 042
  4. RAYOS [Suspect]
     Active Substance: PREDNISONE
     Indication: Product used for unknown indication
     Route: 065

REACTIONS (6)
  - Nephrolithiasis [Unknown]
  - Blood pressure decreased [Unknown]
  - Flank pain [Unknown]
  - Fatigue [Unknown]
  - Asthenia [Unknown]
  - Pain [Unknown]
